FAERS Safety Report 9414398 (Version 2)
Quarter: 2013Q3

REPORT INFORMATION
  Report Type: Report from Study
  Country: US (occurrence: US)
  Receive Date: 20130723
  Receipt Date: 20130726
  Transmission Date: 20140515
  Serious: Yes (Hospitalization)
  Sender: FDA-Public Use
  Company Number: US-GLAXOSMITHKLINE-A1034272A

PATIENT
  Age: 62 Year
  Sex: Male
  Weight: 104 kg

DRUGS (7)
  1. PAZOPANIB [Suspect]
     Indication: RENAL CANCER
     Dosage: 800MG PER DAY
     Route: 048
     Dates: start: 20130705
  2. COMPAZINE [Concomitant]
     Indication: NAUSEA
     Dates: start: 20130705
  3. ZOFRAN [Concomitant]
     Indication: NAUSEA
     Dates: start: 20130705
  4. FLUTICASONE [Concomitant]
  5. SIMVASTATIN [Concomitant]
  6. BISOPROLOL + HYDROCHLOROTHIAZIDE [Concomitant]
  7. LISINOPRIL [Concomitant]

REACTIONS (3)
  - Dehydration [Recovered/Resolved]
  - Nausea [Recovered/Resolved]
  - Diarrhoea [Recovered/Resolved]
